FAERS Safety Report 7729080-2 (Version None)
Quarter: 2011Q3

REPORT INFORMATION
  Report Type: 
  Country: None (occurrence: None)
  Receive Date: 20110831
  Receipt Date: 20110831
  Transmission Date: 20111222
  Serious: Yes (Other)
  Sender: FDA-Public Use
  Company Number: None

PATIENT
  Age: 78 Year
  Sex: Male
  Weight: 74.3899 kg

DRUGS (1)
  1. PRADAXA [Suspect]
     Dosage: 1; 3

REACTIONS (1)
  - RASH [None]
